FAERS Safety Report 6529677-1 (Version None)
Quarter: 2010Q1

REPORT INFORMATION
  Report Type: 
  Country: None (occurrence: None)
  Receive Date: 20100107
  Receipt Date: 20091230
  Transmission Date: 20100710
  Serious: Yes (Other)
  Sender: FDA-Public Use
  Company Number: PHHY2009DE60049

PATIENT
  Sex: Male

DRUGS (2)
  1. VOLTAREN [Suspect]
     Indication: MUSCULOSKELETAL PAIN
     Dosage: 25 MG, BID
     Route: 048
     Dates: start: 20091227, end: 20091228
  2. MICTONORM [Concomitant]
     Dosage: REGULARLY

REACTIONS (2)
  - CONCOMITANT DISEASE PROGRESSION [None]
  - PARAPLEGIA [None]
